FAERS Safety Report 12847409 (Version 2)
Quarter: 2016Q4

REPORT INFORMATION
  Report Type: Spontaneous
  Country: US (occurrence: US)
  Receive Date: 20161014
  Receipt Date: 20161107
  Transmission Date: 20170207
  Serious: Yes (Other)
  Sender: FDA-Public Use
  Company Number: US-APOPHARMA USA, INC.-2016AP012781

PATIENT
  Age: 6 Month
  Sex: Female

DRUGS (2)
  1. ALKERAN [Suspect]
     Active Substance: MELPHALAN
     Indication: CONGENITAL RETINOBLASTOMA
     Dosage: 30 ?G, OTHER
     Route: 050
  2. ALKERAN [Suspect]
     Active Substance: MELPHALAN
     Dosage: 25 ?G, OTHER
     Route: 050

REACTIONS (2)
  - Retinopathy haemorrhagic [Recovered/Resolved]
  - Chorioretinal atrophy [Recovered/Resolved]
